FAERS Safety Report 4411160-0 (Version None)
Quarter: 2004Q2

REPORT INFORMATION
  Report Type: 
  Country: None (occurrence: None)
  Receive Date: 20040630
  Receipt Date: 20040423
  Transmission Date: 20050107
  Serious: No
  Sender: FDA-Public Use
  Company Number: 03P-163-0245978-00

PATIENT
  Age: 65 Year
  Sex: Female
  Weight: 72.5755 kg

DRUGS (14)
  1. HUMIRA [Suspect]
     Indication: RHEUMATOID ARTHRITIS
     Dosage: 40 MG, 1 IN 2 WK, SUBCUTANEOUS
     Route: 058
     Dates: start: 20031127, end: 20040108
  2. HUMIRA [Suspect]
     Indication: RHEUMATOID ARTHRITIS
     Dosage: 40 MG, 1 IN 2 WK, SUBCUTANEOUS
     Route: 058
     Dates: start: 20040208
  3. WARFARIN SODIUM [Concomitant]
  4. FUROSEMIDE [Concomitant]
  5. KCL TAB [Concomitant]
  6. AMLODIPINE BESYLATE [Concomitant]
  7. PREDNISONE TAB [Concomitant]
  8. METOPROLOL [Concomitant]
  9. MORPHINE [Concomitant]
  10. OXYCODONE HCL [Concomitant]
  11. LORAZEPAM [Concomitant]
  12. CONSTULOSE [Concomitant]
  13. LEXAPRO [Concomitant]
  14. SERTRALINE HYDROCHLORIDE [Concomitant]

REACTIONS (7)
  - CANDIDIASIS [None]
  - HOT FLUSH [None]
  - NIGHT SWEATS [None]
  - PYREXIA [None]
  - RASH [None]
  - TOOTH INFECTION [None]
  - TREMOR [None]
